FAERS Safety Report 9955554 (Version 1)
Quarter: 2014Q1

REPORT INFORMATION
  Report Type: Report from Study
  Country: US (occurrence: US)
  Receive Date: 20140304
  Receipt Date: 20140304
  Transmission Date: 20141002
  Serious: Yes (Other)
  Sender: FDA-Public Use
  Company Number: US-ABBVIE-13P-163-1083345-00

PATIENT
  Sex: Female
  Weight: 124.85 kg

DRUGS (17)
  1. HUMIRA [Suspect]
     Indication: RHEUMATOID ARTHRITIS
     Dates: start: 2008
  2. HUMIRA [Suspect]
  3. NIFEDIPINE [Concomitant]
     Indication: HYPERTENSION
  4. BENICAR [Concomitant]
     Indication: HYPERTENSION
  5. TRICOR [Concomitant]
     Indication: BLOOD CHOLESTEROL INCREASED
  6. ZETIA [Concomitant]
     Indication: BLOOD CHOLESTEROL INCREASED
  7. ULTRACET [Concomitant]
     Indication: PAIN
  8. DICLOFENAC [Concomitant]
     Indication: RHEUMATOID ARTHRITIS
  9. SEASONIQUE [Concomitant]
     Indication: CONTRACEPTION
  10. ALLEGRA [Concomitant]
     Indication: HYPERSENSITIVITY
  11. NASONEX [Concomitant]
     Indication: HYPERSENSITIVITY
  12. MULTIVITAMIN [Concomitant]
     Indication: VITAMIN SUPPLEMENTATION
  13. CALCIUM [Concomitant]
     Indication: MINERAL SUPPLEMENTATION
  14. MAGNESIUM [Concomitant]
     Indication: MINERAL SUPPLEMENTATION
  15. VITAMIN D NOS [Concomitant]
     Indication: VITAMIN SUPPLEMENTATION
  16. FOLIC ACID [Concomitant]
     Indication: VITAMIN SUPPLEMENTATION
  17. OMEPRAZOLE [Concomitant]
     Indication: GASTROOESOPHAGEAL REFLUX DISEASE

REACTIONS (5)
  - Cholelithiasis [Recovered/Resolved]
  - Infection [Recovered/Resolved]
  - Abdominal pain [Recovered/Resolved]
  - Upper respiratory tract infection [Recovered/Resolved]
  - Overweight [Recovering/Resolving]
